FAERS Safety Report 7284796-X (Version None)
Quarter: 2011Q1

REPORT INFORMATION
  Report Type: 
  Country: None (occurrence: None)
  Receive Date: 20110210
  Receipt Date: 20110207
  Transmission Date: 20110831
  Serious: No
  Sender: FDA-Public Use
  Company Number: US-PFIZER INC-2011027434

PATIENT
  Sex: Female
  Weight: 103.4 kg

DRUGS (4)
  1. AMLODIPINE/OLMESARTAN MEDOXOMIL [Concomitant]
     Dosage: UNK
  2. PRISTIQ [Suspect]
     Indication: DEPRESSION
     Dosage: 50 MG, 1X/DAY
     Route: 048
     Dates: start: 20110107
  3. NEXIUM [Concomitant]
     Dosage: UNK
  4. ACETYLSALICYLIC ACID [Concomitant]
     Dosage: LOW DOSE

REACTIONS (1)
  - MEDICATION RESIDUE [None]
